FAERS Safety Report 7404548-7 (Version None)
Quarter: 2011Q2

REPORT INFORMATION
  Report Type: 
  Country: None (occurrence: None)
  Receive Date: 20110411
  Receipt Date: 20110330
  Transmission Date: 20111010
  Serious: Yes (Other)
  Sender: FDA-Public Use
  Company Number: DK-AMGEN-QUU438548

PATIENT
  Age: 66 Year
  Sex: Female

DRUGS (1)
  1. ETANERCEPT [Suspect]
     Indication: PSORIATIC ARTHROPATHY
     Dosage: 50 MG, QWK
     Route: 058
     Dates: start: 20100311, end: 20100801

REACTIONS (2)
  - METASTASIS [None]
  - CARCINOID TUMOUR OF THE SMALL BOWEL [None]
